FAERS Safety Report 19465325 (Version 1)
Quarter: 2021Q2

REPORT INFORMATION
  Report Type: Spontaneous
  Country: DE (occurrence: DE)
  Receive Date: 20210624
  Receipt Date: 20210624
  Transmission Date: 20210717
  Serious: Yes (Other)
  Sender: FDA-Public Use
  Company Number: DE-ASTRAZENECA-2021A539588

PATIENT
  Sex: Male
  Weight: 102 kg

DRUGS (2)
  1. ROSUVASTATIN. [Suspect]
     Active Substance: ROSUVASTATIN
     Route: 048
     Dates: start: 202006, end: 202009
  2. FORXIGA [Suspect]
     Active Substance: DAPAGLIFLOZIN
     Route: 048
     Dates: start: 202012

REACTIONS (3)
  - Left ventricular failure [Unknown]
  - Listless [Unknown]
  - Hypotension [Unknown]

NARRATIVE: CASE EVENT DATE: 202009
